FAERS Safety Report 13858445 (Version 2)
Quarter: 2017Q3

REPORT INFORMATION
  Report Type: Spontaneous
  Country: CA (occurrence: CA)
  Receive Date: 20170811
  Receipt Date: 20170918
  Transmission Date: 20171127
  Serious: Yes (Other)
  Sender: FDA-Public Use
  Company Number: CA-MYLANLABS-2017M1049466

PATIENT
  Age: 45 Year
  Sex: Female
  Weight: 59 kg

DRUGS (2)
  1. CLARUS [Suspect]
     Active Substance: ISOTRETINOIN
     Indication: ACNE
     Dosage: 2 DF, QD
     Route: 048
     Dates: start: 20170502, end: 20170702
  2. CLARUS [Suspect]
     Active Substance: ISOTRETINOIN
     Indication: ACNE
     Dosage: 40 MG, QD
     Route: 048
     Dates: start: 20170502, end: 20170702

REACTIONS (5)
  - Skin reaction [Recovered/Resolved]
  - Burning sensation [Recovered/Resolved]
  - Skin sensitisation [Recovered/Resolved]
  - Pruritus [Recovered/Resolved]
  - Scar [Recovered/Resolved]

NARRATIVE: CASE EVENT DATE: 20170523
